FAERS Safety Report 8062184-6 (Version None)
Quarter: 2012Q1

REPORT INFORMATION
  Report Type: 
  Country: None (occurrence: None)
  Receive Date: 20120123
  Receipt Date: 20120116
  Transmission Date: 20120608
  Serious: Yes (Death)
  Sender: FDA-Public Use
  Company Number: US-ROXANE LABORATORIES, INC.-2012-EU-00339GD

PATIENT
  Age: 51 Year
  Sex: Female

DRUGS (5)
  1. MORPHINE [Suspect]
     Route: 048
  2. ALPRAZOLAM [Suspect]
     Route: 048
  3. FLUOXETINE [Suspect]
     Route: 048
  4. PROMETHAZINE [Suspect]
     Route: 048
  5. HYDROMORPHONE HCL [Suspect]
     Route: 048

REACTIONS (1)
  - COMPLETED SUICIDE [None]
